FAERS Safety Report 4927443-1 (Version None)
Quarter: 2006Q1

REPORT INFORMATION
  Report Type: 
  Country: None (occurrence: None)
  Receive Date: 20060228
  Receipt Date: 20060221
  Transmission Date: 20060701
  Serious: Yes (Hospitalization)
  Sender: FDA-Public Use
  Company Number: JP-JNJFOC-20060205355

PATIENT
  Sex: Female
  Weight: 40 kg

DRUGS (7)
  1. REMICADE [Suspect]
  2. REMICADE [Suspect]
  3. REMICADE [Suspect]
  4. REMICADE [Suspect]
  5. REMICADE [Suspect]
     Indication: CROHN'S DISEASE
  6. PREDONINE [Concomitant]
     Indication: CROHN'S DISEASE
     Route: 048
  7. FLAGYL [Concomitant]
     Indication: CROHN'S DISEASE
     Route: 048

REACTIONS (8)
  - HAEMORRHAGIC DIATHESIS [None]
  - HEPATOSPLENOMEGALY [None]
  - INFUSION RELATED REACTION [None]
  - PYREXIA [None]
  - RASH [None]
  - SHOCK [None]
  - STOMATITIS [None]
  - VENA CAVA INJURY [None]
